FAERS Safety Report 25270017 (Version 7)
Quarter: 2025Q3

REPORT INFORMATION
  Report Type: Spontaneous
  Country: US (occurrence: US)
  Receive Date: 20250505
  Receipt Date: 20250808
  Transmission Date: 20251021
  Serious: No
  Sender: PFIZER
  Company Number: US-PFIZER INC-202500092433

PATIENT
  Age: 13 Year
  Sex: Male

DRUGS (5)
  1. GENOTROPIN [Suspect]
     Active Substance: SOMATROPIN
     Indication: Hypopituitarism
     Dosage: ALTER 1MG WITH 1.2MG DAILY/ALTERNATING 1MG + 1.2MG DAILY DOSE
  2. GENOTROPIN [Suspect]
     Active Substance: SOMATROPIN
     Indication: Growth hormone deficiency
     Dosage: ALTER 1MG WITH 1.2MG DAILY/ALTERNATING 1MG + 1.2MG DAILY DOSE
  3. GENOTROPIN [Suspect]
     Active Substance: SOMATROPIN
     Dosage: 1.1 MG, DAILY, 7 DAYS/WEEK
  4. GENOTROPIN [Suspect]
     Active Substance: SOMATROPIN
     Dosage: DAILY DOSE ALTERNATE 1.2 MG + 1.4 MG MG/DAY 7 DAYS/WEEK
  5. GENOTROPIN [Suspect]
     Active Substance: SOMATROPIN
     Dosage: DAILY DOSE ALTERNATE 1.2 MG + 1.4 MG MG/DAY 7 DAYS/WEEK

REACTIONS (4)
  - Device delivery system issue [Unknown]
  - Device information output issue [Unknown]
  - Drug dose omission by device [Unknown]
  - Product prescribing error [Unknown]
